APPROVED DRUG PRODUCT: LOPINAVIR AND RITONAVIR
Active Ingredient: LOPINAVIR; RITONAVIR
Strength: 200MG;50MG
Dosage Form/Route: TABLET;ORAL
Application: A214696 | Product #002 | TE Code: AB
Applicant: MICRO LABS LTD
Approved: Dec 11, 2025 | RLD: No | RS: No | Type: RX